FAERS Safety Report 5551552-X (Version None)
Quarter: 2007Q4

REPORT INFORMATION
  Report Type: 
  Country: None (occurrence: None)
  Receive Date: 20071212
  Receipt Date: 20071130
  Transmission Date: 20080405
  Serious: Yes (Other)
  Sender: FDA-Public Use
  Company Number: US-PFIZER INC-2007040696

PATIENT
  Sex: Male

DRUGS (5)
  1. VIAGRA [Suspect]
     Indication: ERECTILE DYSFUNCTION
     Route: 048
  2. ATENOLOL [Concomitant]
     Dates: start: 20030101, end: 20070101
  3. SAW PALMETTO [Concomitant]
     Dates: start: 19970101
  4. HERBAL NOS/MINERALS NOS/VITAMINS NOS [Concomitant]
     Dates: start: 20030101, end: 20050101
  5. HERBAL PREPARATION [Concomitant]
     Dates: start: 20000101, end: 20060101

REACTIONS (4)
  - BLINDNESS [None]
  - BLINDNESS UNILATERAL [None]
  - OPTIC ISCHAEMIC NEUROPATHY [None]
  - RETINAL VEIN OCCLUSION [None]
